FAERS Safety Report 13088997 (Version 1)
Quarter: 2017Q1

REPORT INFORMATION
  Report Type: Spontaneous
  Country: US (occurrence: US)
  Receive Date: 20170105
  Receipt Date: 20170105
  Transmission Date: 20170428
  Serious: No
  Sender: FDA-Public Use
  Company Number: US-PERRIGO-16US001052

PATIENT
  Age: 69 Year
  Sex: Female
  Weight: 48.98 kg

DRUGS (1)
  1. GUAIFENESIN. [Suspect]
     Active Substance: GUAIFENESIN
     Indication: SINUS HEADACHE
     Dosage: 1200 MG, EVERY 12 HOURS
     Route: 048
     Dates: start: 20160104, end: 20160204

REACTIONS (2)
  - Incorrect drug administration duration [Recovered/Resolved]
  - Off label use [Recovered/Resolved]

NARRATIVE: CASE EVENT DATE: 20160104
